FAERS Safety Report 23262630 (Version 1)
Quarter: 2023Q4

REPORT INFORMATION
  Report Type: Spontaneous
  Country: US (occurrence: US)
  Receive Date: 20231205
  Receipt Date: 20231205
  Transmission Date: 20240110
  Serious: Yes (Other)
  Sender: FDA-Public Use
  Company Number: US-ENDO-CASE-0048453

PATIENT
  Sex: Female

DRUGS (13)
  1. TRAMADOL HYDROCHLORIDE [Suspect]
     Active Substance: TRAMADOL HYDROCHLORIDE
  2. OPANA ER [Suspect]
     Active Substance: OXYMORPHONE HYDROCHLORIDE
  3. PERCOCET [Suspect]
     Active Substance: ACETAMINOPHEN\OXYCODONE HYDROCHLORIDE
  4. ACETAMINOPHEN\OXYCODONE HYDROCHLORIDE [Suspect]
     Active Substance: ACETAMINOPHEN\OXYCODONE HYDROCHLORIDE
  5. FENTANYL CITRATE [Suspect]
     Active Substance: FENTANYL CITRATE
  6. OPANA [Suspect]
     Active Substance: OXYMORPHONE HYDROCHLORIDE
  7. BUTALBITAL, ACETAMINOPHEN AND CAFFEINE WITH CODEINE PHOSPHATE [Suspect]
     Active Substance: ACETAMINOPHEN\BUTALBITAL\CAFFEINE\CODEINE PHOSPHATE
  8. OXYMORPHONE [Suspect]
     Active Substance: OXYMORPHONE
  9. OXYMORPHONE HYDROCHLORIDE [Suspect]
     Active Substance: OXYMORPHONE HYDROCHLORIDE
  10. FENTANYL [Suspect]
     Active Substance: FENTANYL\FENTANYL CITRATE
  11. OXYCONTIN [Suspect]
     Active Substance: OXYCODONE HYDROCHLORIDE
  12. VICODIN [Suspect]
     Active Substance: ACETAMINOPHEN\HYDROCODONE BITARTRATE
  13. PROPOXYPHENE HYDROCHLORIDE [Suspect]
     Active Substance: PROPOXYPHENE HYDROCHLORIDE

REACTIONS (4)
  - Dependence [Unknown]
  - Product prescribing issue [Unknown]
  - Neck injury [Unknown]
  - Limb injury [Unknown]
